FAERS Safety Report 12940966 (Version 1)
Quarter: 2016Q4

REPORT INFORMATION
  Report Type: Other
  Country: None (occurrence: US)
  Receive Date: 20161114
  Receipt Date: 20161114
  Transmission Date: 20170207
  Serious: Yes (Other)
  Sender: FDA-Public Use
  Company Number: US-GUTHY-RENKER LLC-1059518

PATIENT
  Age: 18 Year
  Sex: Female

DRUGS (2)
  1. INHALERS FOR BRONCHOSPASM [Concomitant]
  2. IT COSMETICS BYE BYE FOUNDATION SPF 50+ [Suspect]
     Active Substance: TITANIUM DIOXIDE\ZINC OXIDE
     Indication: PROPHYLAXIS AGAINST SOLAR RADIATION
     Route: 061
     Dates: start: 20161030

REACTIONS (2)
  - Dyspnoea [Recovered/Resolved]
  - Chest discomfort [None]

NARRATIVE: CASE EVENT DATE: 20161030
